FAERS Safety Report 13904315 (Version 1)
Quarter: 2017Q3

REPORT INFORMATION
  Report Type: Spontaneous
  Country: US (occurrence: None)
  Receive Date: 20170819
  Receipt Date: 20170819
  Transmission Date: 20171127
  Serious: Yes (Hospitalization)
  Sender: FDA-Public Use
  Company Number: None

PATIENT
  Age: 70 Year
  Sex: Female

DRUGS (21)
  1. ENBREL [Suspect]
     Active Substance: ETANERCEPT
     Indication: RHEUMATOID ARTHRITIS
     Route: 058
     Dates: start: 20170719
  2. METHOTREXATE. [Concomitant]
     Active Substance: METHOTREXATE
  3. VESICARE [Concomitant]
     Active Substance: SOLIFENACIN SUCCINATE
  4. FIORICET [Concomitant]
     Active Substance: ACETAMINOPHEN\BUTALBITAL\CAFFEINE
  5. MECLIZINE [Concomitant]
     Active Substance: MECLIZINE HYDROCHLORIDE
  6. RANITIDINE. [Concomitant]
     Active Substance: RANITIDINE
  7. NAPROXEN. [Concomitant]
     Active Substance: NAPROXEN
  8. BUT/APAP/CUT [Concomitant]
  9. OXYCONTIN [Concomitant]
     Active Substance: OXYCODONE HYDROCHLORIDE
  10. SPIRONOLACTONE. [Concomitant]
     Active Substance: SPIRONOLACTONE
  11. METOPROLOL. [Concomitant]
     Active Substance: METOPROLOL
  12. FOLIC ACID. [Concomitant]
     Active Substance: FOLIC ACID
  13. AMLODIPINE / BENAZEPRIL [Concomitant]
  14. BACLOFEN. [Concomitant]
     Active Substance: BACLOFEN
  15. GABAPENTIN. [Concomitant]
     Active Substance: GABAPENTIN
  16. ATORVASTATIN [Concomitant]
     Active Substance: ATORVASTATIN
  17. TIZANIDINE. [Concomitant]
     Active Substance: TIZANIDINE
  18. OXYCODONE [Concomitant]
     Active Substance: OXYCODONE
  19. JANUVIA [Concomitant]
     Active Substance: SITAGLIPTIN PHOSPHATE
  20. LOTREL [Concomitant]
     Active Substance: AMLODIPINE BESYLATE\BENAZEPRIL HYDROCHLORIDE
  21. LIDOCAINE. [Concomitant]
     Active Substance: LIDOCAINE

REACTIONS (3)
  - Oropharyngeal pain [None]
  - Malaise [None]
  - Infection [None]

NARRATIVE: CASE EVENT DATE: 20170803
